FAERS Safety Report 16920184 (Version 1)
Quarter: 2019Q4

REPORT INFORMATION
  Report Type: Spontaneous
  Country: US (occurrence: US)
  Receive Date: 20191015
  Receipt Date: 20191015
  Transmission Date: 20200122
  Serious: Yes (Hospitalization)
  Sender: FDA-Public Use
  Company Number: NVSC2019US002604

PATIENT
  Age: 68 Year
  Sex: Female

DRUGS (1)
  1. ETANERCEPT [Suspect]
     Active Substance: ETANERCEPT
     Indication: RHEUMATOID ARTHRITIS
     Dosage: UNK
     Route: 065

REACTIONS (6)
  - Empyema [Unknown]
  - Dyspnoea [Unknown]
  - Respiratory failure [Unknown]
  - Fatigue [Unknown]
  - Pyrexia [Unknown]
  - Cardiac failure [Unknown]
